FAERS Safety Report 6323612-7 (Version None)
Quarter: 2009Q3

REPORT INFORMATION
  Report Type: 
  Country: None (occurrence: None)
  Receive Date: 20090818
  Receipt Date: 20090312
  Transmission Date: 20100115
  Serious: Yes (Hospitalization)
  Sender: FDA-Public Use
  Company Number: MEDI-0008086

PATIENT
  Age: 7 Month
  Sex: Male

DRUGS (1)
  1. SYNAGIS [Suspect]
     Dates: start: 20081101, end: 20090122

REACTIONS (1)
  - RESPIRATORY SYNCYTIAL VIRUS INFECTION [None]
